FAERS Safety Report 9378315 (Version 1)
Quarter: 2013Q3

REPORT INFORMATION
  Report Type: Spontaneous
  Country: FR (occurrence: FR)
  Receive Date: 20130701
  Receipt Date: 20130701
  Transmission Date: 20140515
  Serious: Yes (Hospitalization)
  Sender: FDA-Public Use
  Company Number: FR-TEVA-416201ISR

PATIENT
  Age: 76 Year
  Sex: Female

DRUGS (5)
  1. FUROSEMIDE TEVA 40 MG [Suspect]
     Dosage: 40 MILLIGRAM DAILY; SCORED TABLET
     Route: 048
  2. NEBIVOLOL [Concomitant]
     Dosage: LONG TERM
     Route: 048
  3. CACIT [Concomitant]
     Dosage: LONG TERM
     Route: 048
  4. DOLIPRANE [Concomitant]
     Dosage: LONG TERM
     Route: 048
  5. ALLOPURINOL [Concomitant]
     Dosage: LONG TERM
     Route: 048

REACTIONS (2)
  - Dizziness [Recovered/Resolved]
  - Somnolence [Recovered/Resolved]
